FAERS Safety Report 7293363-3 (Version None)
Quarter: 2011Q1

REPORT INFORMATION
  Report Type: 
  Country: None (occurrence: None)
  Receive Date: 20110215
  Receipt Date: 20110210
  Transmission Date: 20110831
  Serious: Yes (Hospitalization)
  Sender: FDA-Public Use
  Company Number: JP-PFIZER INC-2010037419

PATIENT
  Age: 87 Year
  Sex: Male
  Weight: 47.9 kg

DRUGS (18)
  1. AMLODIPINE [Concomitant]
     Route: 048
     Dates: end: 20100302
  2. RENIVACE [Concomitant]
     Dosage: UNK
     Route: 048
  3. ROHYPNOL [Concomitant]
     Dosage: UNK
     Route: 048
     Dates: start: 20100304
  4. MUCOSTA [Concomitant]
     Dosage: UNK
     Route: 048
  5. PURSENNID [Concomitant]
     Route: 048
     Dates: end: 20100303
  6. ZANTAC [Concomitant]
     Route: 048
     Dates: end: 20100302
  7. GELATIN [Suspect]
     Indication: HEPATIC NEOPLASM MALIGNANT
     Dosage: 80 MG/DAY
     Dates: start: 20100301, end: 20100301
  8. LENDORMIN [Concomitant]
     Dosage: UNK
     Route: 048
  9. FLIVAS [Concomitant]
     Dosage: UNK
     Route: 048
     Dates: start: 20100310
  10. SENNA [Concomitant]
     Dosage: UNK
     Route: 048
     Dates: start: 20100304
  11. SALAZOSULFAPYRIDINE [Concomitant]
     Dosage: UNK
     Route: 048
  12. FAMOTIDINE [Concomitant]
     Dosage: UNK
     Route: 048
     Dates: start: 20100303
  13. EPIRUBICIN HYDROCHLORIDE [Suspect]
     Indication: HEPATIC NEOPLASM MALIGNANT
     Dosage: 60 MG/DAY, INJ
     Dates: start: 20100301, end: 20100301
  14. SIMVASTATIN [Concomitant]
     Dosage: UNK
     Route: 048
  15. ALESION [Concomitant]
     Dosage: UNK
     Route: 048
  16. LOXONIN [Concomitant]
     Route: 048
     Dates: start: 20100303, end: 20100303
  17. AMLODIPINE [Concomitant]
     Dosage: UNK
     Route: 048
     Dates: start: 20100303
  18. CEFAZOLIN SODIUM [Concomitant]
     Route: 042
     Dates: start: 20100301, end: 20100308

REACTIONS (1)
  - BILOMA [None]
